FAERS Safety Report 21521760 (Version 1)
Quarter: 2022Q4

REPORT INFORMATION
  Report Type: Other
  Country: IE (occurrence: None)
  Receive Date: 20221028
  Receipt Date: 20221028
  Transmission Date: 20230113
  Serious: Yes (Hospitalization)
  Sender: FDA-Public Use
  Company Number: IE-Merck Healthcare KGaA-9359936

PATIENT

DRUGS (2)
  1. METFORMIN HYDROCHLORIDE [Suspect]
     Active Substance: METFORMIN HYDROCHLORIDE
     Indication: Type 2 diabetes mellitus
     Route: 064
  2. INSULIN NOS [Concomitant]
     Active Substance: INSULIN NOS
     Indication: Insulin resistance
     Route: 064

REACTIONS (2)
  - Respiratory disorder neonatal [Unknown]
  - Foetal exposure during pregnancy [Recovered/Resolved]
